FAERS Safety Report 9828347 (Version 2)
Quarter: 2014Q1

REPORT INFORMATION
  Report Type: Spontaneous
  Country: US (occurrence: US)
  Receive Date: 20140117
  Receipt Date: 20140128
  Transmission Date: 20141002
  Serious: Yes (Other)
  Sender: FDA-Public Use
  Company Number: US-BAYER-2014-006501

PATIENT
  Age: 59 Year
  Sex: Female

DRUGS (1)
  1. BETASERON [Suspect]
     Indication: RELAPSING-REMITTING MULTIPLE SCLEROSIS
     Dosage: 8 MIU, QOD
     Route: 058
     Dates: start: 20100929

REACTIONS (5)
  - Rib fracture [Recovered/Resolved]
  - Fall [Recovered/Resolved]
  - Rash pruritic [Recovering/Resolving]
  - Skin discolouration [None]
  - Scab [Not Recovered/Not Resolved]
